FAERS Safety Report 6127815-6 (Version None)
Quarter: 2009Q1

REPORT INFORMATION
  Report Type: 
  Country: None (occurrence: None)
  Receive Date: 20090320
  Receipt Date: 20090320
  Transmission Date: 20090719
  Serious: Yes (Other)
  Sender: FDA-Public Use
  Company Number: None

PATIENT

DRUGS (2)
  1. PHENYLEPHRINE HYDROCLORIDE OPTH 2.5% BOUSCH AND LOMB [Suspect]
     Indication: GLAUCOMA
  2. TROPICAMIDE [Suspect]
     Indication: MYDRIASIS

REACTIONS (2)
  - CIRCUMSTANCE OR INFORMATION CAPABLE OF LEADING TO MEDICATION ERROR [None]
  - MEDICATION ERROR [None]
